FAERS Safety Report 7942482-4 (Version None)
Quarter: 2011Q4

REPORT INFORMATION
  Report Type: 
  Country: None (occurrence: None)
  Receive Date: 20111128
  Receipt Date: 20111121
  Transmission Date: 20120403
  Serious: Yes (Other)
  Sender: FDA-Public Use
  Company Number: US-GLAXOSMITHKLINE-A0954782A

PATIENT
  Age: 41 Year
  Sex: Female

DRUGS (1)
  1. FLOLAN [Suspect]
     Indication: COR PULMONALE CHRONIC
     Dosage: 28NGKM PER DAY
     Route: 042
     Dates: start: 20061009

REACTIONS (1)
  - CLOSTRIDIUM DIFFICILE COLITIS [None]
